FAERS Safety Report 14894972 (Version 1)
Quarter: 2018Q2

REPORT INFORMATION
  Report Type: Spontaneous
  Country: US (occurrence: US)
  Receive Date: 20180427
  Receipt Date: 20180427
  Transmission Date: 20180711
  Serious: Yes (Other)
  Sender: FDA-Public Use
  Company Number: None

PATIENT
  Age: 45 Year
  Sex: Female
  Weight: 126 kg

DRUGS (6)
  1. MODAFINAL 200MG. TABLET GENERIC FOR PROVIGIL MANUFACTURER INGENUS PHA [Suspect]
     Active Substance: MODAFINIL
     Indication: NARCOLEPSY
     Dosage: ?          QUANTITY:2 TABLET(S);?
     Route: 048
     Dates: start: 20180417, end: 20180427
  2. PROVIGIL/MODAFINIL [Concomitant]
  3. VITAMIN B COMPLEX [Concomitant]
     Active Substance: CYANOCOBALAMIN\DEXPANTHENOL\NIACINAMIDE\PYRIDOXINE HYDROCHLORIDE\RIBOFLAVIN 5^-PHOSPHATE SODIUM\THIAMINE HYDROCHLORIDE\VITAMIN B COMPLEX
  4. ICELANDIC KELP FIBER SMART [Concomitant]
  5. D KYOLIC GARLIC EXTRACT [Concomitant]
  6. DEXTROAMPHETAMINE. [Concomitant]
     Active Substance: DEXTROAMPHETAMINE

REACTIONS (6)
  - Product shape issue [None]
  - Product colour issue [None]
  - Insomnia [None]
  - Nervousness [None]
  - Product substitution issue [None]
  - Drug ineffective [None]

NARRATIVE: CASE EVENT DATE: 20180427
